FAERS Safety Report 12436733 (Version 1)
Quarter: 2016Q2

REPORT INFORMATION
  Report Type: Spontaneous
  Country: US (occurrence: None)
  Receive Date: 20160603
  Receipt Date: 20160603
  Transmission Date: 20160815
  Serious: Yes (Disabling)
  Sender: FDA-Public Use
  Company Number: None

PATIENT
  Age: 71 Year
  Sex: Female
  Weight: 68.04 kg

DRUGS (19)
  1. NORCO [Concomitant]
     Active Substance: ACETAMINOPHEN\HYDROCODONE BITARTRATE
  2. MULTI VITAMIN [Concomitant]
     Active Substance: VITAMINS
  3. VITAMIN B12 [Concomitant]
     Active Substance: CYANOCOBALAMIN
  4. COQ10 [Concomitant]
     Active Substance: UBIDECARENONE
  5. KLONOPIN [Concomitant]
     Active Substance: CLONAZEPAM
  6. TRAZODONE [Concomitant]
     Active Substance: TRAZODONE HYDROCHLORIDE
  7. VIT. D3 [Concomitant]
  8. VITAMIN C [Concomitant]
     Active Substance: ASCORBIC ACID
  9. SOMA [Concomitant]
     Active Substance: CARISOPRODOL
  10. CYMBALTA [Concomitant]
     Active Substance: DULOXETINE HYDROCHLORIDE
  11. MAGNESIUM [Concomitant]
     Active Substance: MAGNESIUM
  12. WELLBUTRIN XL [Concomitant]
     Active Substance: BUPROPION HYDROCHLORIDE
  13. LIDOCAINE. [Concomitant]
     Active Substance: LIDOCAINE
  14. PRILOSEC [Concomitant]
     Active Substance: OMEPRAZOLE MAGNESIUM
  15. POTASSIUM [Concomitant]
     Active Substance: POTASSIUM
  16. OMEGA 3 [Concomitant]
     Active Substance: OMEGA-3 FATTY ACIDS
  17. CALCIUM [Concomitant]
     Active Substance: CALCIUM
  18. ROZEREM [Suspect]
     Active Substance: RAMELTEON
     Indication: INSOMNIA
     Dosage: 1 TABLET(S) AT BEDTIME TAKEN BY MOUTH
     Route: 048
     Dates: start: 20160501, end: 20160505
  19. LEUCOVORIN CALCIUM. [Concomitant]
     Active Substance: LEUCOVORIN CALCIUM

REACTIONS (3)
  - Disease recurrence [None]
  - Tinnitus [None]
  - Ear discomfort [None]

NARRATIVE: CASE EVENT DATE: 20160505
